FAERS Safety Report 4288753-7 (Version None)
Quarter: 2004Q1

REPORT INFORMATION
  Report Type: 
  Country: None (occurrence: None)
  Receive Date: 20040130
  Receipt Date: 20030415
  Transmission Date: 20041129
  Serious: Yes (Other)
  Sender: FDA-Public Use
  Company Number: PHEH2003US02537

PATIENT
  Age: 32 Year
  Sex: Female
  Weight: 39.9 kg

DRUGS (6)
  1. RITALIN [Suspect]
     Indication: PAIN
     Dosage: 25 MG, TID
     Dates: start: 20020401
  2. METHADONE HCL [Suspect]
     Dosage: 100 MG, TID
  3. MORPHINE SULFATE [Suspect]
     Dosage: 60 MG, Q3-4HR PRN
  4. ACTIQ [Suspect]
     Dosage: PRN, ORAL
     Route: 048
  5. PROVIGIL [Suspect]
     Dosage: 300MG/DAY
  6. EFFEXOR [Suspect]
     Dosage: 225 MG, QHS

REACTIONS (1)
  - CONVULSION [None]
